FAERS Safety Report 21714716 (Version 1)
Quarter: 2022Q4

REPORT INFORMATION
  Report Type: Spontaneous
  Country: US (occurrence: US)
  Receive Date: 20221212
  Receipt Date: 20221212
  Transmission Date: 20230113
  Serious: Yes (Hospitalization)
  Sender: FDA-Public Use
  Company Number: US-BRISTOL-MYERS SQUIBB COMPANY-2022-151312

PATIENT
  Age: 79 Year
  Sex: Female

DRUGS (1)
  1. ELIQUIS [Suspect]
     Active Substance: APIXABAN
     Indication: Product used for unknown indication
     Dosage: DOSE : 1 TABLET;     FREQ : 1 TABLET TWICE DAILY?STRENGTH : 5 MG TABLET
     Route: 048

REACTIONS (1)
  - Adverse event [Unknown]
